FAERS Safety Report 5616272-1 (Version None)
Quarter: 2008Q1

REPORT INFORMATION
  Report Type: 
  Country: None (occurrence: None)
  Receive Date: 20080204
  Receipt Date: 20080124
  Transmission Date: 20080703
  Serious: Yes (Other)
  Sender: FDA-Public Use
  Company Number: CHPA2008US01490

PATIENT
  Age: 51 Year
  Sex: Male

DRUGS (1)
  1. MAALOX ANTIACID/ANTIGAS MAX STR MULTI SYMPTOM (NCH)(MAGNESIUM HYDROXID [Suspect]
     Indication: STOMACH DISCOMFORT
     Dosage: ONE DOSE TAKEN, ORAL
     Route: 048
     Dates: start: 20080120, end: 20080120

REACTIONS (3)
  - DRUG INEFFECTIVE [None]
  - FAECES DISCOLOURED [None]
  - GASTROENTERITIS VIRAL [None]
